FAERS Safety Report 16408037 (Version 2)
Quarter: 2019Q3

REPORT INFORMATION
  Report Type: Spontaneous
  Country: US (occurrence: US)
  Receive Date: 20190610
  Receipt Date: 20190705
  Transmission Date: 20191004
  Serious: No
  Sender: FDA-Public Use
  Company Number: US-ASTRAZENECA-2019SE74361

PATIENT
  Sex: Female

DRUGS (1)
  1. PULMICORT FLEXHALER [Suspect]
     Active Substance: BUDESONIDE
     Indication: ASTHMA
     Route: 055

REACTIONS (5)
  - Product use issue [Recovered/Resolved]
  - Visual impairment [Not Recovered/Not Resolved]
  - Device failure [Unknown]
  - Cataract [Not Recovered/Not Resolved]
  - Off label use [Not Recovered/Not Resolved]
